FAERS Safety Report 7269869-X (Version None)
Quarter: 2011Q1

REPORT INFORMATION
  Report Type: 
  Country: None (occurrence: None)
  Receive Date: 20110125
  Receipt Date: 20110111
  Transmission Date: 20110831
  Serious: No
  Sender: FDA-Public Use
  Company Number: B0695140A

PATIENT
  Age: 20 Year
  Sex: Male

DRUGS (1)
  1. ACYCLOVIR INFUSION (GENERIC) (ACYCLOVIR) [Suspect]
     Indication: HERPES ZOSTER
     Dosage: 5 MG/KG/ THREE TIMES PER DAY/ INTRA
     Route: 037

REACTIONS (3)
  - AUTOIMMUNE THROMBOCYTOPENIA [None]
  - MEGAKARYOCYTES INCREASED [None]
  - THERAPEUTIC RESPONSE DECREASED [None]
